FAERS Safety Report 10313624 (Version 1)
Quarter: 2014Q3

REPORT INFORMATION
  Report Type: Spontaneous
  Country: US (occurrence: US)
  Receive Date: 20140718
  Receipt Date: 20140718
  Transmission Date: 20150326
  Serious: No
  Sender: FDA-Public Use
  Company Number: US-009507513-1407USA008444

PATIENT

DRUGS (1)
  1. ZETIA [Suspect]
     Active Substance: EZETIMIBE

REACTIONS (16)
  - Emotional disorder [Unknown]
  - Vitamin D deficiency [Unknown]
  - Dyspnoea [Unknown]
  - Muscular weakness [Unknown]
  - Oral candidiasis [Unknown]
  - Lung infection [Unknown]
  - Arthralgia [Unknown]
  - Decreased appetite [Unknown]
  - Acquired oesophageal web [Unknown]
  - Mycobacterial infection [Unknown]
  - Cough [Unknown]
  - Gastrooesophageal reflux disease [Unknown]
  - Tooth extraction [Unknown]
  - Fatigue [Unknown]
  - Poor quality sleep [Unknown]
  - Oesophageal dilatation [Unknown]
